FAERS Safety Report 20533992 (Version 1)
Quarter: 2022Q1

REPORT INFORMATION
  Report Type: Report from Study
  Country: NL (occurrence: NL)
  Receive Date: 20220301
  Receipt Date: 20220301
  Transmission Date: 20220423
  Serious: Yes (Other)
  Sender: FDA-Public Use
  Company Number: NL-AstraZeneca-2022A086210

PATIENT
  Sex: Male
  Weight: 5.2 kg

DRUGS (2)
  1. SYNAGIS [Suspect]
     Active Substance: PALIVIZUMAB
     Indication: Premature baby
     Route: 030
     Dates: start: 20211103
  2. FERROFUMERAAT [Concomitant]
     Indication: Product used for unknown indication
     Dosage: EVERY DAY
     Route: 065

REACTIONS (1)
  - Inguinal hernia [Not Recovered/Not Resolved]
